FAERS Safety Report 5459114-X (Version None)
Quarter: 2007Q3

REPORT INFORMATION
  Report Type: 
  Country: None (occurrence: None)
  Receive Date: 20070813
  Receipt Date: 20070410
  Transmission Date: 20080115
  Serious: Yes (Hospitalization)
  Sender: FDA-Public Use
  Company Number: 20073625

PATIENT
  Sex: Male

DRUGS (4)
  1. LIORESAL [Suspect]
     Indication: MUSCLE SPASTICITY
     Dosage: MCG, DAILY, INTRATHECAL
     Route: 037
  2. PRIALT [Concomitant]
  3. PROVIGIL [Concomitant]
  4. CYMBALTA [Concomitant]

REACTIONS (5)
  - AMBLYOPIA [None]
  - AMNESIA [None]
  - SOMNOLENCE [None]
  - SPEECH DISORDER [None]
  - THINKING ABNORMAL [None]
